FAERS Safety Report 9740694 (Version 1)
Quarter: 2013Q4

REPORT INFORMATION
  Report Type: Spontaneous
  Country: US (occurrence: US)
  Receive Date: 20131209
  Receipt Date: 20131209
  Transmission Date: 20140711
  Serious: Yes (Other)
  Sender: FDA-Public Use
  Company Number: US-PFIZER INC-2013347311

PATIENT
  Age: 76 Year
  Sex: Female

DRUGS (7)
  1. LYRICA [Suspect]
     Indication: NEUROPATHY PERIPHERAL
     Dosage: UNK
     Route: 048
  2. LYRICA [Suspect]
     Indication: NERVOUS SYSTEM DISORDER
     Dosage: 75 MG, 2X/DAY
  3. GABAPENTIN [Suspect]
     Indication: NEUROPATHY PERIPHERAL
     Dosage: UNK
  4. CYMBALTA [Suspect]
     Dosage: UNK
  5. ALLOPURINOL [Concomitant]
     Indication: BLOOD URIC ACID ABNORMAL
     Dosage: UNK
  6. LABETALOL [Concomitant]
     Indication: HYPERTENSION
     Dosage: UNK
  7. XANAX [Concomitant]
     Dosage: 2.5 MG, 2X/DAY

REACTIONS (14)
  - Off label use [Unknown]
  - Suicidal ideation [Unknown]
  - Intervertebral disc protrusion [Unknown]
  - Scar [Unknown]
  - Post procedural complication [Unknown]
  - Muscle disorder [Unknown]
  - Pain [Unknown]
  - Abnormal dreams [Unknown]
  - Pain in extremity [Unknown]
  - Local swelling [Unknown]
  - Drug effect incomplete [Unknown]
  - Drug resistance [Unknown]
  - Fall [Unknown]
  - Nerve injury [Unknown]
